FAERS Safety Report 9412088 (Version 1)
Quarter: 2013Q2

REPORT INFORMATION
  Report Type: Spontaneous
  Country: US (occurrence: None)
  Receive Date: 20130404
  Receipt Date: 20130404
  Transmission Date: 20140414
  Serious: Yes (Other)
  Sender: FDA-Public Use
  Company Number: AUR-APL-2013-02404

PATIENT
  Age: 4 Day
  Sex: 0

DRUGS (1)
  1. OXYCODONE (OXYCODONE) [Suspect]
     Indication: PRODUCT USED FOR UNKNOWN INDICATION
     Route: 063

REACTIONS (4)
  - Exposure during breast feeding [None]
  - Hypothermia neonatal [None]
  - Lethargy [None]
  - Miosis [None]
